FAERS Safety Report 25628954 (Version 1)
Quarter: 2025Q3

REPORT INFORMATION
  Report Type: Spontaneous
  Country: US (occurrence: US)
  Receive Date: 20250731
  Receipt Date: 20250731
  Transmission Date: 20251021
  Serious: No
  Sender: BAUSCH AND LOMB
  Company Number: US-BAUSCH-BH-2025-015362

PATIENT
  Age: 68 Year
  Sex: Female

DRUGS (1)
  1. JUBLIA [Suspect]
     Active Substance: EFINACONAZOLE
     Indication: Nail disorder
     Route: 061

REACTIONS (7)
  - Application site pruritus [Unknown]
  - Application site vesicles [Unknown]
  - Device issue [Unknown]
  - Product quality issue [Unknown]
  - Product dose omission in error [Unknown]
  - Therapy interrupted [Unknown]
  - Product packaging quantity issue [Unknown]
